FAERS Safety Report 5034970-8 (Version None)
Quarter: 2006Q2

REPORT INFORMATION
  Report Type: 
  Country: None (occurrence: None)
  Receive Date: 20060519
  Receipt Date: 20060405
  Transmission Date: 20061013
  Serious: No
  Sender: FDA-Public Use
  Company Number: TPA2006A00608

PATIENT
  Age: 53 Year
  Sex: Female
  Weight: 99.7913 kg

DRUGS (5)
  1. ROZEREM [Suspect]
     Indication: INSOMNIA
     Dosage: 8 MG, HS, PER ORAL
     Route: 048
     Dates: start: 20060330, end: 20060404
  2. CARDURA (DOXAZOSIN) (TABLETS) [Concomitant]
  3. CADET (ALL OTHER THERAPEUTIC PRODUCTS) (TABLETS) [Concomitant]
  4. IBUPROFEN (IBUPROFEN) (800 MILLIGRAM) [Concomitant]
  5. METFORMIN (METFORMIN) (1000 MILLIGRAM) [Concomitant]

REACTIONS (3)
  - BLOOD GLUCOSE INCREASED [None]
  - DRUG INEFFECTIVE [None]
  - FATIGUE [None]
